FAERS Safety Report 8301404 (Version 2)
Quarter: 2013Q4

REPORT INFORMATION
  Report Type: Spontaneous
  Country: US (occurrence: US)
  Receive Date: 20111219
  Receipt Date: 20131031
  Transmission Date: 20140711
  Serious: Yes (Hospitalization, Other)
  Sender: FDA-Public Use
  Company Number: US-ASTRAZENECA-2011SE28787

PATIENT
  Age: 64 Year
  Sex: Female
  Weight: 68 kg

DRUGS (10)
  1. NEXIUM [Suspect]
     Indication: GASTROOESOPHAGEAL REFLUX DISEASE
     Route: 048
     Dates: start: 2011
  2. NEXIUM [Suspect]
     Indication: GASTROOESOPHAGEAL REFLUX DISEASE
     Route: 048
  3. AMBIEN [Concomitant]
     Indication: SLEEP DISORDER
     Dates: start: 2012
  4. PROVIGIL [Concomitant]
     Indication: FATIGUE
     Dates: start: 2002
  5. XANAX [Concomitant]
     Indication: ANXIETY
     Dosage: UNSURE OF DOSE BID PRN
     Dates: start: 2012
  6. BLOOD PRESSURE MEDICATION [Concomitant]
     Indication: BLOOD PRESSURE ABNORMAL
     Dates: start: 2000
  7. PROZAC [Concomitant]
     Indication: DEPRESSION
     Dosage: GENERIC
     Dates: start: 2010
  8. BUSPONE [Concomitant]
     Indication: ANXIETY
     Dates: start: 2013
  9. MULTIVITAMIN [Concomitant]
     Dates: start: 2002
  10. ASPIRIN [Concomitant]
     Indication: ANTICOAGULANT THERAPY
     Dates: start: 201309

REACTIONS (19)
  - Traumatic lung injury [Unknown]
  - Accidental device ingestion [Unknown]
  - Chronic obstructive pulmonary disease [Unknown]
  - Bronchial hyperreactivity [Unknown]
  - Cough [Unknown]
  - Choking sensation [Unknown]
  - Apnoea [Unknown]
  - Oxygen saturation decreased [Unknown]
  - Gastrooesophageal reflux disease [Unknown]
  - Hernia [Unknown]
  - Breast pain [Unknown]
  - Chest pain [Unknown]
  - Device defective [Unknown]
  - Surgical failure [Unknown]
  - Blood potassium decreased [Unknown]
  - Blood glucose increased [Unknown]
  - Dehydration [Unknown]
  - Renal impairment [Unknown]
  - Drug dose omission [Unknown]
